FAERS Safety Report 8373308-5 (Version None)
Quarter: 2012Q2

REPORT INFORMATION
  Report Type: 
  Country: None (occurrence: None)
  Receive Date: 20120521
  Receipt Date: 20120511
  Transmission Date: 20120825
  Serious: Yes (Hospitalization, Other)
  Sender: FDA-Public Use
  Company Number: CZ-ASTRAZENECA-2012SE09656

PATIENT
  Age: 24067 Day
  Sex: Male

DRUGS (31)
  1. AZD6140 [Suspect]
     Indication: CORONARY ARTERY DISEASE
     Route: 048
     Dates: start: 20111123, end: 20111208
  2. AMILORIDE HYDROCHLORIDE [Suspect]
     Indication: HYPERTENSION
     Route: 048
     Dates: end: 20111207
  3. ACETAMINOPHEN [Concomitant]
     Indication: PYREXIA
     Route: 048
     Dates: start: 20111206, end: 20111207
  4. FUROSEMIDE [Concomitant]
     Indication: RENAL FAILURE
     Route: 048
     Dates: start: 20110110
  5. EPINEPHRINE [Concomitant]
     Indication: DUODENAL ULCER HAEMORRHAGE
     Dosage: ENDOSCOPIC INJECTION
     Dates: start: 20111213, end: 20111213
  6. HYDROCHLOROTHIAZIDE [Suspect]
     Indication: HYPERTENSION
     Route: 048
     Dates: end: 20111207
  7. ATORVASTATIN CALCIUM [Concomitant]
     Indication: HYPERLIPIDAEMIA
     Route: 048
     Dates: end: 20111212
  8. INSULINUM GLARGINUM [Concomitant]
     Indication: TYPE 2 DIABETES MELLITUS
     Route: 058
  9. PERINDOPRIL ERBUMINE [Concomitant]
     Indication: HYPERTENSION
     Route: 048
     Dates: end: 20111208
  10. AMOXILILIN+ACIDUM CLAVULANICUM [Concomitant]
     Indication: BRONCHOPNEUMONIA
     Route: 042
     Dates: start: 20111206, end: 20120120
  11. ASPIRIN [Suspect]
     Route: 048
     Dates: end: 20111212
  12. PENTOXIFYLLINE [Concomitant]
     Indication: DIABETIC VASCULAR DISORDER
     Route: 048
     Dates: end: 20111208
  13. FENOFIBRATE [Concomitant]
     Indication: HYPERLIPIDAEMIA
     Route: 048
     Dates: end: 20111208
  14. AMLODIPINE [Concomitant]
     Indication: HYPERTENSION
     Route: 048
     Dates: end: 20111208
  15. FUROSEMIDE [Concomitant]
     Route: 042
     Dates: start: 20111210, end: 20111211
  16. CIPROFLOXACIN [Concomitant]
     Indication: BRONCHOPNEUMONIA
     Route: 042
     Dates: start: 20111210, end: 20111230
  17. LOSARTAN POTASSIUM [Concomitant]
     Indication: HYPERTENSION
     Route: 048
     Dates: end: 20111206
  18. TIMOLOL MALEATE [Concomitant]
     Indication: DIABETIC RETINOPATHY
     Route: 047
  19. DOBUTAMIN [Concomitant]
     Indication: HYPOTENSION
     Route: 042
     Dates: start: 20111210, end: 20111214
  20. METOPROLOL [Concomitant]
     Indication: ATRIAL FIBRILLATION
     Route: 048
     Dates: start: 20111212
  21. PANTOPRAZOLE [Concomitant]
     Indication: GASTROINTESTINAL HAEMORRHAGE
     Route: 048
     Dates: start: 20111213
  22. BISOPROLOL FUMARATE [Concomitant]
     Indication: MYOCARDIAL INFARCTION
     Route: 048
     Dates: end: 20111212
  23. INSULINUM GLULISINUM [Concomitant]
     Indication: TYPE 2 DIABETES MELLITUS
     Route: 058
  24. BIMATOPROSTUM [Concomitant]
     Indication: DIABETIC RETINOPATHY
     Route: 047
  25. ALLOPURINOL [Concomitant]
     Indication: HYPERURICAEMIA
     Route: 048
     Dates: end: 20111212
  26. ENOXAPARIN [Concomitant]
     Indication: THROMBOSIS PROPHYLAXIS
     Route: 058
     Dates: start: 20111208, end: 20111213
  27. DORZOLAMIDUM [Concomitant]
     Indication: DIABETIC RETINOPATHY
     Route: 047
  28. PARACETAMOLUM [Concomitant]
     Indication: PYREXIA
     Route: 048
     Dates: start: 20111208, end: 20120108
  29. NORADRENALIN [Concomitant]
     Indication: HYPOTENSION
     Route: 042
     Dates: start: 20111210, end: 20111215
  30. DIGOXIN [Concomitant]
     Indication: ATRIAL FIBRILLATION
     Route: 042
     Dates: start: 20111210, end: 20111210
  31. AMIODARONE HCL [Concomitant]
     Indication: ATRIAL FIBRILLATION
     Route: 048
     Dates: start: 20111212

REACTIONS (8)
  - TRAUMATIC HAEMATOMA [None]
  - RENAL FAILURE ACUTE [None]
  - NEPHROGENIC ANAEMIA [None]
  - GASTRIC ULCER HAEMORRHAGE [None]
  - DUODENAL ULCER HAEMORRHAGE [None]
  - BRONCHOPNEUMONIA [None]
  - ABSCESS LIMB [None]
  - INFECTION [None]
